FAERS Safety Report 8507921-9 (Version None)
Quarter: 2012Q3

REPORT INFORMATION
  Report Type: 
  Country: None (occurrence: None)
  Receive Date: 20120713
  Receipt Date: 20120709
  Transmission Date: 20120928
  Serious: Yes (Hospitalization)
  Sender: FDA-Public Use
  Company Number: US-BAYER-2011-106999

PATIENT
  Age: 26 Year
  Sex: Female
  Weight: 64.853 kg

DRUGS (5)
  1. YAZ [Suspect]
     Indication: ORAL CONTRACEPTION
     Dosage: UNK
     Dates: start: 20090801, end: 20090901
  2. IBUPROFEN [Concomitant]
     Indication: PAIN
     Dosage: 800 MG, PRN
     Route: 048
  3. EFFEXOR XR [Concomitant]
     Indication: ANXIETY
     Dosage: 75 MG, QD
     Dates: start: 20080414
  4. NORCO [Concomitant]
     Route: 048
  5. ACETAMINOPHEN W/ CODEINE [Concomitant]
     Dosage: UNK
     Route: 048
     Dates: start: 20090722

REACTIONS (4)
  - ABDOMINAL DISCOMFORT [None]
  - CHOLELITHIASIS [None]
  - NAUSEA [None]
  - ABDOMINAL PAIN UPPER [None]
